FAERS Safety Report 14904182 (Version 1)
Quarter: 2018Q2

REPORT INFORMATION
  Report Type: Report from Study
  Country: RU (occurrence: RU)
  Receive Date: 20180516
  Receipt Date: 20180516
  Transmission Date: 20180711
  Serious: Yes (Other)
  Sender: FDA-Public Use
  Company Number: RU-ASTRAZENECA-2018SE64427

PATIENT
  Age: 35 Year
  Sex: Female

DRUGS (1)
  1. FORXIGA [Suspect]
     Active Substance: DAPAGLIFLOZIN
     Route: 048

REACTIONS (4)
  - Intentional product misuse [Unknown]
  - Off label use [Unknown]
  - Ketoacidosis [Recovered/Resolved]
  - Aspartate aminotransferase increased [Recovered/Resolved]
